FAERS Safety Report 6226516-3 (Version None)
Quarter: 2009Q2

REPORT INFORMATION
  Report Type: 
  Country: None (occurrence: None)
  Receive Date: 20090612
  Receipt Date: 20090610
  Transmission Date: 20091009
  Serious: Yes (Death, Other)
  Sender: FDA-Public Use
  Company Number: US-ASTRAZENECA-2009UW14854

PATIENT
  Age: 15 Year
  Sex: Female

DRUGS (1)
  1. SEROQUEL [Suspect]
     Indication: DEPRESSION
     Route: 048
     Dates: start: 20051220

REACTIONS (11)
  - AGGRESSION [None]
  - AGITATION [None]
  - ARRHYTHMIA [None]
  - ASTHENIA [None]
  - CONFUSIONAL STATE [None]
  - DYSKINESIA [None]
  - NUCHAL RIGIDITY [None]
  - SOMNOLENCE [None]
  - SUICIDAL BEHAVIOUR [None]
  - TREMOR [None]
  - WEIGHT INCREASED [None]
